FAERS Safety Report 9320317 (Version 2)
Quarter: 2013Q2

REPORT INFORMATION
  Report Type: Report from Study
  Country: MX (occurrence: MX)
  Receive Date: 20130530
  Receipt Date: 20130628
  Transmission Date: 20140414
  Serious: Yes (Other)
  Sender: FDA-Public Use
  Company Number: MX-ABBOTT-13P-107-1097065-00

PATIENT
  Age: 58 Year
  Sex: Female
  Weight: 67 kg

DRUGS (1)
  1. HUMIRA [Suspect]
     Indication: RHEUMATOID ARTHRITIS
     Route: 058
     Dates: start: 201101, end: 201303

REACTIONS (5)
  - Corneal perforation [Recovered/Resolved]
  - Drug ineffective [Recovered/Resolved]
  - Arthritis [Unknown]
  - Discomfort [Recovering/Resolving]
  - Cataract [Unknown]
